FAERS Safety Report 6016992-3 (Version None)
Quarter: 2008Q4

REPORT INFORMATION
  Report Type: 
  Country: None (occurrence: None)
  Receive Date: 20081223
  Receipt Date: 20081209
  Transmission Date: 20090506
  Serious: Yes (Hospitalization, Other)
  Sender: FDA-Public Use
  Company Number: US-ROCHE-594845

PATIENT
  Sex: Female
  Weight: 63.5 kg

DRUGS (10)
  1. CAPECITABINE [Suspect]
     Dosage: 1500 MG IN THE MORNING, 1500 MG IN THE EVENING
     Route: 048
     Dates: start: 20080925, end: 20081006
  2. ENALAPRIL MALEATE [Concomitant]
  3. PLAVIX [Concomitant]
  4. SANDOSTATIN [Concomitant]
  5. GINGER [Concomitant]
     Dosage: FORM: PILLS
  6. PRILOSEC [Concomitant]
     Dosage: TAKEN DAILY
     Route: 048
  7. ASPIRIN [Concomitant]
     Dosage: TAKEN DAILY
     Route: 048
  8. PLAVIX [Concomitant]
     Dosage: TAKEN DAILY
     Route: 048
  9. LOPRESSOR [Concomitant]
     Route: 048
  10. SIMVASTATIN [Concomitant]
     Dosage: TAKEN DAILY
     Route: 048

REACTIONS (11)
  - DIARRHOEA [None]
  - HYPOCHLORAEMIA [None]
  - HYPOKALAEMIA [None]
  - HYPONATRAEMIA [None]
  - HYPOPHOSPHATAEMIA [None]
  - LARGE INTESTINAL ULCER [None]
  - MALNUTRITION [None]
  - METABOLIC DISORDER [None]
  - MUCOSAL INFLAMMATION [None]
  - PALMAR-PLANTAR ERYTHRODYSAESTHESIA SYNDROME [None]
  - SEPSIS [None]
